FAERS Safety Report 7719236-7 (Version None)
Quarter: 2011Q3

REPORT INFORMATION
  Report Type: 
  Country: None (occurrence: None)
  Receive Date: 20110830
  Receipt Date: 20110819
  Transmission Date: 20111222
  Serious: Yes (Hospitalization)
  Sender: FDA-Public Use
  Company Number: JP-AMGEN-JPNCT2011020623

PATIENT
  Age: 85 Year
  Sex: Female
  Weight: 66 kg

DRUGS (8)
  1. PANITUMUMAB [Suspect]
     Indication: COLORECTAL CANCER
     Dosage: 6 MG/KG, Q2WK
     Route: 041
     Dates: start: 20100929, end: 20100929
  2. AMOLIN 250 CAPSULES [Concomitant]
     Dosage: UNK
     Route: 048
  3. ASPIRIN [Concomitant]
     Indication: CEREBRAL INFARCTION
     Route: 048
     Dates: start: 20060117
  4. CANDESARTAN CILEXETIL [Concomitant]
     Indication: HYPERTENSION
     Route: 048
     Dates: start: 20060117
  5. MAGMITT [Concomitant]
     Indication: CONSTIPATION
     Route: 048
     Dates: start: 20080604
  6. ARICEPT [Concomitant]
     Indication: DEMENTIA
     Route: 048
     Dates: start: 20060111
  7. UREPEARL [Concomitant]
     Indication: DERMATITIS
     Route: 062
     Dates: start: 20100609, end: 20101112
  8. MYSER [Concomitant]
     Indication: DERMATITIS
     Route: 062
     Dates: start: 20100609

REACTIONS (5)
  - DERMATITIS ACNEIFORM [None]
  - SKIN ULCER [None]
  - GASTRIC ULCER HAEMORRHAGE [None]
  - DERMATITIS [None]
  - ENTEROCOLITIS [None]
